FAERS Safety Report 19268024 (Version 2)
Quarter: 2021Q3

REPORT INFORMATION
  Report Type: Spontaneous
  Country: CH (occurrence: CH)
  Receive Date: 20210517
  Receipt Date: 20210708
  Transmission Date: 20211014
  Serious: Yes (Hospitalization, Other)
  Sender: FDA-Public Use
  Company Number: CH-ASTRAZENECA-2021A433924

PATIENT
  Age: 39 Year
  Sex: Male
  Weight: 76 kg

DRUGS (9)
  1. PREDNISONE. [Concomitant]
     Active Substance: PREDNISONE
     Dosage: 50 MILLIGRAM, 1/DAY
     Route: 048
     Dates: start: 20210330, end: 20210404
  2. ZOVIRAX [Suspect]
     Active Substance: ACYCLOVIR
     Indication: FACIAL PARALYSIS
     Dosage: 800 MILLIGRAM, 2/DAY
     Route: 042
     Dates: start: 20210404, end: 20210404
  3. ZOVIRAX [Suspect]
     Active Substance: ACYCLOVIR
     Indication: VARICELLA ZOSTER VIRUS INFECTION
     Dosage: 800 MILLIGRAM, 2/DAY
     Route: 042
     Dates: start: 20210404, end: 20210404
  4. FRAGMIN [Concomitant]
     Active Substance: DALTEPARIN SODIUM
     Indication: THROMBOSIS PROPHYLAXIS
     Dosage: 1 DOSAGE FORM, 1/DAY
     Route: 058
     Dates: start: 20210403, end: 20210404
  5. VITAMIN A [Concomitant]
     Active Substance: VITAMIN A
     Indication: PROPHYLAXIS
     Dosage: UNK UNK, 1/DAY
     Route: 047
     Dates: start: 20210403, end: 20210406
  6. FERMAVISC SINE [Concomitant]
     Indication: PROPHYLAXIS
     Dosage: 2 DOSAGE FORM, 4/DAY
     Route: 047
     Dates: start: 20210406, end: 20210407
  7. LACRINORM [Concomitant]
     Active Substance: CARBOMER
     Indication: PROPHYLAXIS
     Dosage: 2 DROP, EVERY 4 HRS
     Route: 047
     Dates: start: 20210403, end: 20210406
  8. ESOMEP [Suspect]
     Active Substance: ESOMEPRAZOLE
     Indication: PRODUCT USED FOR UNKNOWN INDICATION
     Dosage: 20 MILLIGRAM, 1/DAY
     Route: 048
     Dates: start: 20210404, end: 20210405
  9. OSPEN [Concomitant]
     Active Substance: PENICILLIN V
     Indication: TONSILLITIS
     Dosage: 1 MILLI?INTERNATIONAL UNIT, 4/DAY
     Route: 048
     Dates: start: 20210317, end: 20210323

REACTIONS (2)
  - Acute kidney injury [Recovering/Resolving]
  - Tubulointerstitial nephritis [Recovering/Resolving]

NARRATIVE: CASE EVENT DATE: 202104
